FAERS Safety Report 10301563 (Version 1)
Quarter: 2014Q3

REPORT INFORMATION
  Report Type: Spontaneous
  Country: US (occurrence: None)
  Receive Date: 20140709
  Receipt Date: 20140709
  Transmission Date: 20150326
  Serious: Yes (Hospitalization)
  Sender: FDA-Public Use
  Company Number: None

PATIENT
  Age: 76 Year
  Sex: Male
  Weight: 92.3 kg

DRUGS (1)
  1. AMIODARONE [Suspect]
     Active Substance: AMIODARONE
     Indication: ATRIAL FIBRILLATION
     Route: 048
     Dates: start: 20130227, end: 20140530

REACTIONS (5)
  - Pulmonary toxicity [None]
  - Pneumonia [None]
  - Acute respiratory failure [None]
  - Pneumothorax traumatic [None]
  - Toxicity to various agents [None]

NARRATIVE: CASE EVENT DATE: 20140520
